FAERS Safety Report 21390219 (Version 1)
Quarter: 2022Q3

REPORT INFORMATION
  Report Type: Spontaneous
  Country: US (occurrence: None)
  Receive Date: 20220927
  Receipt Date: 20220927
  Transmission Date: 20221027
  Serious: Yes (Hospitalization)
  Sender: FDA-Public Use
  Company Number: None

PATIENT
  Sex: Male

DRUGS (1)
  1. ABIRATERONE ACETATE [Suspect]
     Active Substance: ABIRATERONE ACETATE
     Indication: Prostate cancer
     Dosage: FREQUENCY : DAILY;?TAKE 4 TABLETS BY MOUTH ONCE A DAY ON EMPTY STOMACH. DO NOT CHEW OR CRUSH. SWALLO
     Route: 048
     Dates: start: 20200904

REACTIONS (1)
  - Hospitalisation [None]
